FAERS Safety Report 6638832-1 (Version None)
Quarter: 2010Q1

REPORT INFORMATION
  Report Type: 
  Country: None (occurrence: None)
  Receive Date: 20100317
  Receipt Date: 20100305
  Transmission Date: 20100710
  Serious: Yes (Hospitalization)
  Sender: FDA-Public Use
  Company Number: BR-PFIZER INC-2008157793

PATIENT
  Age: 66 Year
  Sex: Female
  Weight: 62 kg

DRUGS (11)
  1. BLINDED *NO SUBJECT DRUG [Suspect]
     Indication: COLORECTAL CANCER METASTATIC
     Dosage: 37.5 MG, 1X/DAY
     Route: 048
     Dates: start: 20080711
  2. BLINDED *PLACEBO [Suspect]
     Indication: COLORECTAL CANCER METASTATIC
     Dosage: 37.5 MG, 1X/DAY
     Route: 048
     Dates: start: 20080711
  3. BLINDED SUNITINIB MALATE [Suspect]
     Indication: COLORECTAL CANCER METASTATIC
     Dosage: 37.5 MG, 1X/DAY
     Route: 048
     Dates: start: 20080711
  4. IRINOTECAN HCL [Suspect]
     Indication: COLORECTAL CANCER METASTATIC
     Dosage: 242 MG, EVERY 2 WEEKS
     Route: 042
     Dates: start: 20080711
  5. FLUOROURACIL [Suspect]
     Indication: COLORECTAL CANCER METASTATIC
     Dosage: 538 MG, BOLUS, DAY 1 EVERY 2 WEEKS
     Route: 042
     Dates: start: 20080711
  6. FLUOROURACIL [Suspect]
     Dosage: 3226 MG, 46HR CONTINUOUS INFUSION, EVERY 2 WEEKS
     Route: 042
     Dates: start: 20080711
  7. CALCIUM FOLINATE [Suspect]
     Indication: COLORECTAL CANCER METASTATIC
     Dosage: 269 MG, EVERY 2 WEEKS
     Route: 042
     Dates: start: 20080711
  8. CAPTOPRIL [Concomitant]
     Dosage: UNK
     Route: 048
     Dates: start: 20030101
  9. GLIBENCLAMIDE [Concomitant]
     Dosage: UNK
     Route: 048
     Dates: start: 20030101
  10. OMEPRAZOLE [Concomitant]
     Dosage: UNK
     Route: 048
     Dates: start: 20080708
  11. LOPERAMIDE [Concomitant]
     Dosage: UNK
     Route: 048
     Dates: start: 20080811

REACTIONS (1)
  - JUGULAR VEIN THROMBOSIS [None]
